FAERS Safety Report 25529008 (Version 1)
Quarter: 2025Q3

REPORT INFORMATION
  Report Type: Spontaneous
  Country: EU (occurrence: EU)
  Receive Date: 20250708
  Receipt Date: 20250708
  Transmission Date: 20251021
  Serious: Yes (Other)
  Sender: MYLAN
  Company Number: EU-MYLANLABS-2025M1056533

PATIENT
  Age: 65 Year
  Sex: Female

DRUGS (28)
  1. ATORVASTATIN [Suspect]
     Active Substance: ATORVASTATIN
     Indication: Hypercholesterolaemia
  2. ATORVASTATIN [Suspect]
     Active Substance: ATORVASTATIN
     Route: 065
  3. ATORVASTATIN [Suspect]
     Active Substance: ATORVASTATIN
     Route: 065
  4. ATORVASTATIN [Suspect]
     Active Substance: ATORVASTATIN
  5. SIMVASTATIN [Suspect]
     Active Substance: SIMVASTATIN
     Indication: Hypercholesterolaemia
  6. SIMVASTATIN [Suspect]
     Active Substance: SIMVASTATIN
     Route: 065
  7. SIMVASTATIN [Suspect]
     Active Substance: SIMVASTATIN
     Route: 065
  8. SIMVASTATIN [Suspect]
     Active Substance: SIMVASTATIN
  9. EZETIMIBE [Suspect]
     Active Substance: EZETIMIBE
     Indication: Hypercholesterolaemia
  10. EZETIMIBE [Suspect]
     Active Substance: EZETIMIBE
     Route: 065
  11. EZETIMIBE [Suspect]
     Active Substance: EZETIMIBE
     Route: 065
  12. EZETIMIBE [Suspect]
     Active Substance: EZETIMIBE
  13. PRAVASTATIN [Suspect]
     Active Substance: PRAVASTATIN
     Indication: Hypercholesterolaemia
  14. PRAVASTATIN [Suspect]
     Active Substance: PRAVASTATIN
     Route: 065
  15. PRAVASTATIN [Suspect]
     Active Substance: PRAVASTATIN
     Route: 065
  16. PRAVASTATIN [Suspect]
     Active Substance: PRAVASTATIN
  17. FLUVASTATIN [Suspect]
     Active Substance: FLUVASTATIN SODIUM
     Indication: Hypercholesterolaemia
  18. FLUVASTATIN [Suspect]
     Active Substance: FLUVASTATIN SODIUM
  19. FLUVASTATIN [Suspect]
     Active Substance: FLUVASTATIN SODIUM
     Route: 065
  20. FLUVASTATIN [Suspect]
     Active Substance: FLUVASTATIN SODIUM
     Route: 065
  21. FLUVASTATIN [Suspect]
     Active Substance: FLUVASTATIN SODIUM
  22. FLUVASTATIN [Suspect]
     Active Substance: FLUVASTATIN SODIUM
  23. FLUVASTATIN [Suspect]
     Active Substance: FLUVASTATIN SODIUM
     Route: 065
  24. FLUVASTATIN [Suspect]
     Active Substance: FLUVASTATIN SODIUM
     Route: 065
  25. ROSUVASTATIN [Suspect]
     Active Substance: ROSUVASTATIN
     Indication: Hypercholesterolaemia
  26. ROSUVASTATIN [Suspect]
     Active Substance: ROSUVASTATIN
     Route: 065
  27. ROSUVASTATIN [Suspect]
     Active Substance: ROSUVASTATIN
     Route: 065
  28. ROSUVASTATIN [Suspect]
     Active Substance: ROSUVASTATIN

REACTIONS (1)
  - Abdominal pain lower [Recovering/Resolving]
